FAERS Safety Report 5699214-2 (Version None)
Quarter: 2008Q2

REPORT INFORMATION
  Report Type: 
  Country: None (occurrence: None)
  Receive Date: 20080407
  Receipt Date: 20080407
  Transmission Date: 20081010
  Serious: No
  Sender: FDA-Public Use
  Company Number: None

PATIENT
  Age: 57 Year
  Sex: Male

DRUGS (6)
  1. ATENOLOL [Suspect]
     Dates: start: 20070304, end: 20070417
  2. COMPLETE LIFE FOR MEN [Concomitant]
  3. GREEN FOOD COMPLEX [Concomitant]
  4. COENZYME Q10 [Concomitant]
  5. GLUCOSAMINE CHONDROITIN [Concomitant]
  6. VITAMIN B COMPLEX CAP [Concomitant]

REACTIONS (2)
  - GRANULOMATOUS LIVER DISEASE [None]
  - LIVER INJURY [None]
